FAERS Safety Report 21361018 (Version 1)
Quarter: 2022Q3

REPORT INFORMATION
  Report Type: Spontaneous
  Country: IN (occurrence: IN)
  Receive Date: 20220921
  Receipt Date: 20220921
  Transmission Date: 20221026
  Serious: Yes (Death)
  Sender: FDA-Public Use
  Company Number: IN-BAYER-2022P014482

PATIENT
  Age: 67 Year
  Sex: Male

DRUGS (1)
  1. SORAFENIB [Suspect]
     Active Substance: SORAFENIB
     Indication: Gastric cancer
     Dosage: UNK
     Dates: start: 2019

REACTIONS (3)
  - Decreased appetite [Fatal]
  - Vomiting [Fatal]
  - Off label use [None]
